FAERS Safety Report 13338577 (Version 1)
Quarter: 2017Q1

REPORT INFORMATION
  Report Type: Spontaneous
  Country: US (occurrence: US)
  Receive Date: 20170315
  Receipt Date: 20170315
  Transmission Date: 20170428
  Serious: Yes (Other)
  Sender: FDA-Public Use
  Company Number: US-JNJFOC-20170205649

PATIENT
  Sex: Male

DRUGS (2)
  1. RISPERDAL [Suspect]
     Active Substance: RISPERIDONE
     Indication: PRODUCT USED FOR UNKNOWN INDICATION
     Route: 048
     Dates: start: 200005, end: 200711
  2. RISPERDONE [Suspect]
     Active Substance: RISPERIDONE
     Indication: PRODUCT USED FOR UNKNOWN INDICATION
     Route: 048
     Dates: start: 200808, end: 201105

REACTIONS (7)
  - Obesity [Unknown]
  - Obsessive-compulsive disorder [Unknown]
  - Dystonia [Unknown]
  - Akathisia [Unknown]
  - Emotional disorder [Unknown]
  - Gynaecomastia [Unknown]
  - Tic [Unknown]
